FAERS Safety Report 24659419 (Version 1)
Quarter: 2024Q4

REPORT INFORMATION
  Report Type: Spontaneous
  Country: US (occurrence: US)
  Receive Date: 20241125
  Receipt Date: 20241125
  Transmission Date: 20250115
  Serious: Yes (Hospitalization)
  Sender: TEVA
  Company Number: US-TEVA-VS-3266014

PATIENT
  Age: 44 Year
  Sex: Female

DRUGS (1)
  1. AJOVY [Suspect]
     Active Substance: FREMANEZUMAB-VFRM
     Indication: Migraine
     Dosage: FORM STRENGTH: 225/1.5MG/ML
     Route: 065

REACTIONS (4)
  - Viral infection [Unknown]
  - Injection site erythema [Unknown]
  - Injection site irritation [Recovered/Resolved]
  - Malaise [Unknown]
